FAERS Safety Report 4954594-8 (Version None)
Quarter: 2006Q1

REPORT INFORMATION
  Report Type: 
  Country: None (occurrence: None)
  Receive Date: 20060327
  Receipt Date: 20060222
  Transmission Date: 20060701
  Serious: Yes (Life-Threatening, Hospitalization)
  Sender: FDA-Public Use
  Company Number: FR-NOVOPROD-251100

PATIENT
  Age: 57 Year
  Sex: Male
  Weight: 114 kg

DRUGS (2)
  1. MIXTARD HUMAN 70/30 [Suspect]
     Indication: DIABETES MELLITUS INSULIN-DEPENDENT
     Dosage: UNK, UNK
     Dates: end: 20060204
  2. ACTRAPID [Suspect]
     Indication: DIABETES MELLITUS INSULIN-DEPENDENT
     Dates: end: 20060204

REACTIONS (5)
  - APHASIA [None]
  - CARDIOMEGALY [None]
  - CAROTID ARTERY STENOSIS [None]
  - EPILEPSY [None]
  - HYPOGLYCAEMIC COMA [None]
